FAERS Safety Report 25745096 (Version 2)
Quarter: 2025Q3

REPORT INFORMATION
  Report Type: Spontaneous
  Country: GB (occurrence: GB)
  Receive Date: 20250901
  Receipt Date: 20250918
  Transmission Date: 20251021
  Serious: Yes (Other)
  Sender: AUROBINDO
  Company Number: GB-MHRA-MED-202508191447274700-RBWHQ

PATIENT
  Age: 44 Year
  Sex: Female
  Weight: 70 kg

DRUGS (2)
  1. CLARITHROMYCIN [Suspect]
     Active Substance: CLARITHROMYCIN
     Indication: Lower respiratory tract infection
     Dosage: 500 MILLIGRAM, TWO TIMES A DAY (500MG BD)
     Route: 065
     Dates: start: 20250815, end: 20250816
  2. TACROLIMUS [Interacting]
     Active Substance: TACROLIMUS
     Indication: Immunosuppression
     Route: 065
     Dates: start: 20210317

REACTIONS (4)
  - Drug interaction [Not Recovered/Not Resolved]
  - Drug level increased [Unknown]
  - Medication error [Unknown]
  - Blood creatine increased [Unknown]
